FAERS Safety Report 15832568 (Version 1)
Quarter: 2018Q4

REPORT INFORMATION
  Report Type: Spontaneous
  Country: US (occurrence: US)
  Receive Date: 20181220
  Receipt Date: 20181220
  Transmission Date: 20190205
  Serious: No
  Sender: FDA-Public Use
  Company Number: None

PATIENT
  Age: 48 Year
  Sex: Male
  Weight: 104.33 kg

DRUGS (1)
  1. TREMFYA [Suspect]
     Active Substance: GUSELKUMAB
     Indication: PSORIASIS
     Dosage: INJECT 100MG  SUBCUTANEOUSLY AT  WEEK 0 AND WEEK 4  AS DIRECTED
     Route: 058
     Dates: start: 201808

REACTIONS (2)
  - Malaise [None]
  - Bacterial infection [None]
